FAERS Safety Report 8362961-8 (Version None)
Quarter: 2012Q2

REPORT INFORMATION
  Report Type: 
  Country: None (occurrence: None)
  Receive Date: 20120516
  Receipt Date: 20110913
  Transmission Date: 20120825
  Serious: No
  Sender: FDA-Public Use
  Company Number: US-ALEXION-A201101402

PATIENT
  Sex: Female

DRUGS (1)
  1. SOLIRIS [Suspect]
     Indication: PAROXYSMAL NOCTURNAL HAEMOGLOBINURIA
     Dosage: UNK
     Route: 042
     Dates: start: 20110912

REACTIONS (4)
  - MALAISE [None]
  - BLOOD LACTATE DEHYDROGENASE INCREASED [None]
  - FEELING ABNORMAL [None]
  - STRESS [None]
